FAERS Safety Report 17873404 (Version 2)
Quarter: 2020Q2

REPORT INFORMATION
  Report Type: Spontaneous
  Country: DE (occurrence: DE)
  Receive Date: 20200609
  Receipt Date: 20200615
  Transmission Date: 20200714
  Serious: Yes (Other)
  Sender: FDA-Public Use
  Company Number: DE-B.I. PHARMACEUTICALS,INC./RIDGEFIELD-2020-12-027677

PATIENT
  Sex: Male

DRUGS (9)
  1. TARGIN [Suspect]
     Active Substance: NALOXONE HYDROCHLORIDE\OXYCODONE HYDROCHLORIDE
     Indication: RESTLESS LEGS SYNDROME
     Dosage: (0 - 20 - 20)
     Route: 048
     Dates: start: 202003, end: 202003
  2. PREGABALIN BETA [Suspect]
     Active Substance: PREGABALIN
     Route: 048
     Dates: start: 202001
  3. SIFROL [Suspect]
     Active Substance: PRAMIPEXOLE
     Indication: RESTLESS LEGS SYNDROME
     Route: 065
     Dates: end: 202003
  4. TARGIN [Suspect]
     Active Substance: NALOXONE HYDROCHLORIDE\OXYCODONE HYDROCHLORIDE
     Dosage: 5 MG AT NOON AND 10 MG FOR THE NIGHT
     Route: 048
  5. OXYCODON HCL/NALOXON HCL BETA [Suspect]
     Active Substance: NALOXONE HYDROCHLORIDE\OXYCODONE HYDROCHLORIDE
     Dosage: 10 MG/5 MG
     Route: 065
  6. PREGABALIN BETA [Suspect]
     Active Substance: PREGABALIN
     Indication: RESTLESS LEGS SYNDROME
     Route: 048
     Dates: start: 202001
  7. OXYCODON HCL/NALOXON HCL BETA [Suspect]
     Active Substance: NALOXONE HYDROCHLORIDE\OXYCODONE HYDROCHLORIDE
     Indication: PRODUCT USED FOR UNKNOWN INDICATION
     Dosage: SOMETIMES WITH 15 MG = 10 / 5 +5 / 2.5
     Route: 065
  8. TARGIN [Suspect]
     Active Substance: NALOXONE HYDROCHLORIDE\OXYCODONE HYDROCHLORIDE
     Dosage: 10 MG AT NOON AND 20 MG FOR THE NIGHT AFTER A FEW YEARS
     Route: 048
  9. OXYCODON HCL/NALOXON HCL BETA [Suspect]
     Active Substance: NALOXONE HYDROCHLORIDE\OXYCODONE HYDROCHLORIDE
     Dosage: MOSTLY ONLY WITH 5 / 2.5 MG
     Route: 065

REACTIONS (1)
  - Sleep apnoea syndrome [Not Recovered/Not Resolved]

NARRATIVE: CASE EVENT DATE: 202003
